FAERS Safety Report 9592976 (Version 1)
Quarter: 2013Q4

REPORT INFORMATION
  Report Type: Spontaneous
  Country: US (occurrence: US)
  Receive Date: 20131004
  Receipt Date: 20131004
  Transmission Date: 20140711
  Serious: Yes (Hospitalization, Other)
  Sender: FDA-Public Use
  Company Number: US-B.I. PHARMACEUTICALS,INC./RIDGEFIELD-2013-BI-30537BP

PATIENT
  Age: 71 Year
  Sex: Female
  Weight: 77 kg

DRUGS (8)
  1. COMBIVENT [Suspect]
     Indication: CHRONIC OBSTRUCTIVE PULMONARY DISEASE
     Dosage: STRENGTH: 18 MCG / 103 MCG;
     Route: 055
     Dates: end: 2013
  2. SULINDAC [Concomitant]
     Indication: ARTHRITIS
     Dosage: 400 MG
     Route: 048
  3. ENALAPRIL [Concomitant]
     Indication: HYPERTENSION
     Dosage: 10 MG
     Route: 048
  4. VITAMIN D 3 [Concomitant]
     Dosage: 5000 U
     Route: 048
  5. ZETIA [Concomitant]
     Indication: BLOOD CHOLESTEROL INCREASED
     Dosage: 10 MG
     Route: 048
  6. ROPINIROLE [Concomitant]
     Indication: PARKINSON^S DISEASE
     Dosage: 9 MG
     Route: 048
  7. ASA [Concomitant]
     Dosage: 81 MG
     Route: 048
  8. PROZAC [Concomitant]
     Indication: DEPRESSION
     Dosage: 20 MG
     Route: 048

REACTIONS (3)
  - Leukaemia [Not Recovered/Not Resolved]
  - Transient ischaemic attack [Recovered/Resolved]
  - Chest pain [Recovered/Resolved]
